FAERS Safety Report 8255858 (Version 2)
Quarter: 2012Q4

REPORT INFORMATION
  Report Type: 
  Country: US (occurrence: US)
  Receive Date: 20111120
  Receipt Date: 20121011
  Transmission Date: 20130627
  Serious: Yes (Hospitalization)
  Sender: FDA-Public Use
  Company Number: US-ELI_LILLY_AND_COMPANY-US201111004164

PATIENT
  Age: 71 None
  Sex: Female

DRUGS (4)
  1. FORTEO [Suspect]
     Indication: OSTEOPOROSIS
     Dosage: 20 ug, qd
     Route: 065
     Dates: start: 20100429
  2. FORTEO [Suspect]
     Dosage: 20 ug, qd
     Route: 065
  3. FORTEO [Suspect]
     Dosage: 20 ug, qd
     Route: 065
  4. TRAMADOL [Concomitant]

REACTIONS (6)
  - Fall [Unknown]
  - Fall [Unknown]
  - Excoriation [Unknown]
  - Paraesthesia [Unknown]
  - Pain in extremity [Unknown]
  - Bone disorder [Unknown]
